FAERS Safety Report 8511672-4 (Version None)
Quarter: 2012Q3

REPORT INFORMATION
  Report Type: 
  Country: None (occurrence: None)
  Receive Date: 20120716
  Receipt Date: 20120702
  Transmission Date: 20120928
  Serious: Yes (Other)
  Sender: FDA-Public Use
  Company Number: GB-ELI_LILLY_AND_COMPANY-GB201207001194

PATIENT
  Age: 93 Year
  Sex: Female

DRUGS (1)
  1. DULOXETINE HYDROCHLORIDE [Suspect]
     Indication: INCONTINENCE
     Dosage: 20 MG, UNK
     Dates: start: 20120618

REACTIONS (4)
  - LOWER RESPIRATORY TRACT INFECTION [None]
  - INTESTINAL PROLAPSE [None]
  - FEELING ABNORMAL [None]
  - FATIGUE [None]
